FAERS Safety Report 26073510 (Version 2)
Quarter: 2025Q4

REPORT INFORMATION
  Report Type: Report from Study
  Country: US (occurrence: US)
  Receive Date: 20251121
  Receipt Date: 20251219
  Transmission Date: 20260117
  Serious: Yes (Hospitalization, Other)
  Sender: AVERITAS
  Company Number: US-GRUNENTHAL-2025-125185

PATIENT
  Age: 76 Year
  Sex: Male

DRUGS (1)
  1. QUTENZA [Suspect]
     Active Substance: CAPSAICIN
     Indication: Diabetic neuropathy
     Dosage: UNK, ONCE
     Route: 061
     Dates: start: 20250821, end: 20250821

REACTIONS (2)
  - Burning sensation [Unknown]
  - Cerebrovascular accident [Recovered/Resolved]
